FAERS Safety Report 8390486-2 (Version None)
Quarter: 2012Q2

REPORT INFORMATION
  Report Type: 
  Country: None (occurrence: None)
  Receive Date: 20120529
  Receipt Date: 20120517
  Transmission Date: 20120825
  Serious: Yes (Other)
  Sender: FDA-Public Use
  Company Number: CA-JNJFOC-20120515517

PATIENT
  Sex: Female
  Weight: 88.2 kg

DRUGS (18)
  1. IRON [Concomitant]
     Route: 065
  2. TYLENOL W/ CODEINE NO. 3 [Concomitant]
     Route: 065
  3. VITAMIN B-12 [Concomitant]
     Route: 065
  4. REMICADE [Suspect]
     Indication: CROHN'S DISEASE
     Route: 042
     Dates: start: 20040515
  5. METHOTREXATE [Concomitant]
     Route: 065
  6. CLONAZEPAM [Concomitant]
     Route: 065
  7. TEMAZEPAM [Concomitant]
     Route: 065
  8. ESCITALOPRAM [Concomitant]
     Route: 065
  9. CLONAZEPAM [Concomitant]
     Route: 065
  10. MESALAMINE [Concomitant]
     Route: 065
  11. MULTIPLE VITAMIN [Concomitant]
     Route: 065
  12. IMOVANE [Concomitant]
     Route: 065
  13. UNKNOWN MEDICATION [Concomitant]
     Route: 065
  14. PANTOPRAZOLE SODIUM [Concomitant]
     Route: 065
  15. FOLIC ACID [Concomitant]
     Route: 065
  16. TOPIRAMATE [Concomitant]
     Route: 065
  17. CODEINE SULFATE [Concomitant]
     Route: 065
  18. PRISTIQ [Concomitant]
     Route: 065

REACTIONS (2)
  - OSTEOPOROSIS [None]
  - COLONOSCOPY [None]
